FAERS Safety Report 20737379 (Version 2)
Quarter: 2022Q2

REPORT INFORMATION
  Report Type: Report from Study
  Country: NL (occurrence: NL)
  Receive Date: 20220421
  Receipt Date: 20220601
  Transmission Date: 20220721
  Serious: Yes (Hospitalization, Other)
  Sender: FDA-Public Use
  Company Number: NL-ABBVIE-22K-114-4365185-00

PATIENT
  Sex: Male

DRUGS (25)
  1. CARBIDOPA\LEVODOPA [Suspect]
     Active Substance: CARBIDOPA\LEVODOPA
     Indication: Parkinson^s disease
     Dosage: 20/5 MG/ML
     Route: 050
     Dates: start: 20191202
  2. CARBIDOPA\LEVODOPA [Suspect]
     Active Substance: CARBIDOPA\LEVODOPA
     Dosage: MD: 6.0 ML, CD: 3.2 ML/H, ED: 1.5 ML
     Route: 050
  3. LEVODOPA [Concomitant]
     Active Substance: LEVODOPA
     Indication: Parkinson^s disease
     Dosage: LEVODOPA + ENZYME INHIBITOR
  4. RIVASTIGMINE [Concomitant]
     Active Substance: RIVASTIGMINE
     Indication: Hallucination
     Route: 003
     Dates: start: 20200224
  5. RIVASTIGMINE [Concomitant]
     Active Substance: RIVASTIGMINE
     Indication: Dementia
  6. MOVICOLON [Concomitant]
     Active Substance: POLYETHYLENE GLYCOL 3350\POTASSIUM CHLORIDE\SODIUM BICARBONATE\SODIUM CHLORIDE
     Indication: Bowel movement irregularity
  7. ASCAL [Concomitant]
     Indication: Product used for unknown indication
  8. CALCIUM\CHOLECALCIFEROL [Concomitant]
     Active Substance: CALCIUM\CHOLECALCIFEROL
     Indication: Product used for unknown indication
     Dosage: 500MG/800IU CHEWING TABLET
     Route: 048
  9. DUTASTERIDE [Concomitant]
     Active Substance: DUTASTERIDE
     Indication: Product used for unknown indication
     Route: 048
  10. EZETIMIBE [Concomitant]
     Active Substance: EZETIMIBE
     Indication: Product used for unknown indication
     Route: 048
  11. BENSERAZIDE HYDROCHLORIDE\LEVODOPA [Concomitant]
     Active Substance: BENSERAZIDE HYDROCHLORIDE\LEVODOPA
     Indication: Product used for unknown indication
  12. SOTALOL [Concomitant]
     Active Substance: SOTALOL
     Indication: Product used for unknown indication
     Route: 048
  13. SIMVASTATIN [Concomitant]
     Active Substance: SIMVASTATIN
     Indication: Product used for unknown indication
     Route: 048
  14. NEUPRO [Concomitant]
     Active Substance: ROTIGOTINE
     Indication: Product used for unknown indication
  15. SILDENAFIL [Concomitant]
     Active Substance: SILDENAFIL
     Indication: Product used for unknown indication
  16. ALBUTEROL\IPRATROPIUM [Concomitant]
     Active Substance: ALBUTEROL\IPRATROPIUM
     Indication: Product used for unknown indication
     Dosage: 1/0.2MG/ML FL (INHALATION) NEBULIZER /1/0.2MG/ML FL (INHALATION) NEBULIZER
  17. ALBUTEROL\IPRATROPIUM [Concomitant]
     Active Substance: ALBUTEROL\IPRATROPIUM
     Dosage: 1/1/0.2MG/ML FL (INHALATION) NEBULIZER
  18. NITROFURANTOIN [Concomitant]
     Active Substance: NITROFURANTOIN
     Indication: Product used for unknown indication
     Dosage: 50 MG POSSIBLE MAINTENANCE DOSE
     Route: 048
  19. ASPIRIN [Concomitant]
     Active Substance: ASPIRIN
     Indication: Product used for unknown indication
     Route: 048
  20. BENSERAZIDE\LEVODOPA [Concomitant]
     Active Substance: BENSERAZIDE\LEVODOPA
     Indication: Product used for unknown indication
     Dosage: 100/25MG
     Route: 048
  21. LEVODOPA/CARBIDOPA PCH [Concomitant]
     Indication: Product used for unknown indication
     Dosage: 100/25MG EMERGENCY MEDICATION/IF NEEDED 4 TIMES A DAY 2
     Route: 048
  22. ACETAMINOPHEN [Concomitant]
     Active Substance: ACETAMINOPHEN
     Indication: Product used for unknown indication
     Dosage: IF NEEDED 4 TIMES PER DAY
     Route: 048
  23. ROTIGOTINE [Concomitant]
     Active Substance: ROTIGOTINE
     Indication: Product used for unknown indication
     Route: 062
  24. MUCOCLEAR [Concomitant]
     Indication: Product used for unknown indication
     Dosage: 6% NACL/INHALATION SOLUTION
  25. POLYETHYLENE GLYCOL\POTASSIUM CHLORIDE\SODIUM BICARBONATE\SODIUM CHLOR [Concomitant]
     Active Substance: POLYETHYLENE GLYCOL\POTASSIUM CHLORIDE\SODIUM BICARBONATE\SODIUM CHLORIDE
     Indication: Product used for unknown indication
     Dosage: SALTS
     Route: 048

REACTIONS (33)
  - General physical health deterioration [Unknown]
  - Mobility decreased [Recovered/Resolved]
  - Atrial fibrillation [Unknown]
  - Unevaluable event [Unknown]
  - Knee deformity [Unknown]
  - Hypophagia [Unknown]
  - Posture abnormal [Unknown]
  - Posture abnormal [Unknown]
  - Hyperventilation [Unknown]
  - Dysarthria [Unknown]
  - Reduced facial expression [Unknown]
  - Lid lag [Unknown]
  - Pneumonia bacterial [Unknown]
  - Balance disorder [Unknown]
  - Restless legs syndrome [Recovering/Resolving]
  - Obstructive airways disorder [Unknown]
  - Bronchiectasis [Unknown]
  - Gait disturbance [Unknown]
  - Tremor [Unknown]
  - Malaise [Unknown]
  - Chest pain [Unknown]
  - Palpitations [Unknown]
  - Dementia [Unknown]
  - Pneumonia [Unknown]
  - Freezing phenomenon [Unknown]
  - Abdominal pain upper [Unknown]
  - Nausea [Unknown]
  - Hypertension [Unknown]
  - Dizziness [Unknown]
  - Hypokinesia [Unknown]
  - Bradykinesia [Unknown]
  - On and off phenomenon [Unknown]
  - Dyskinesia [Unknown]

NARRATIVE: CASE EVENT DATE: 20200101
